FAERS Safety Report 13395228 (Version 2)
Quarter: 2017Q2

REPORT INFORMATION
  Report Type: Spontaneous
  Country: US (occurrence: US)
  Receive Date: 20170403
  Receipt Date: 20170410
  Transmission Date: 20170830
  Serious: No
  Sender: FDA-Public Use
  Company Number: US-PFIZER INC-2017132995

PATIENT
  Age: 58 Year
  Sex: Male
  Weight: 79.38 kg

DRUGS (9)
  1. ZOLOFT [Concomitant]
     Active Substance: SERTRALINE HYDROCHLORIDE
     Dosage: 25 MG, 1X/DAY
  2. BACTRIM DS [Concomitant]
     Active Substance: SULFAMETHOXAZOLE\TRIMETHOPRIM
     Dosage: UNK UNK, ALTERNATE DAY
  3. ZETIA [Concomitant]
     Active Substance: EZETIMIBE
     Indication: BLOOD CHOLESTEROL ABNORMAL
     Dosage: 10 MG, 1X/DAY
  4. PHOSPHORUS [Concomitant]
     Active Substance: PHOSPHORUS
     Dosage: UNK UNK, 1X/DAY
  5. RAPAMUNE [Suspect]
     Active Substance: SIROLIMUS
     Indication: LIVER TRANSPLANT
     Dosage: 2 MG, 1X/DAY (2 MG TABS EVERY ONCE A DAY)
     Dates: start: 2011
  6. RAPAMUNE [Suspect]
     Active Substance: SIROLIMUS
     Dosage: 1 MG, DAILY
  7. METOPROLOL. [Concomitant]
     Active Substance: METOPROLOL
     Indication: HYPERTENSION
     Dosage: 50 MG, 2X/DAY
  8. METOPROLOL. [Concomitant]
     Active Substance: METOPROLOL
     Indication: ARRHYTHMIA
  9. MAGNESIUM [Concomitant]
     Active Substance: MAGNESIUM
     Indication: MINERAL SUPPLEMENTATION
     Dosage: UNK UNK, 2X/DAY

REACTIONS (6)
  - Burning sensation [Unknown]
  - Pain [Recovered/Resolved]
  - Paraesthesia [Not Recovered/Not Resolved]
  - Hypoaesthesia [Unknown]
  - Arthralgia [Unknown]
  - Product use in unapproved indication [Unknown]

NARRATIVE: CASE EVENT DATE: 2011
